FAERS Safety Report 4851317-8 (Version None)
Quarter: 2005Q4

REPORT INFORMATION
  Report Type: 
  Country: None (occurrence: None)
  Receive Date: 20051208
  Receipt Date: 20051202
  Transmission Date: 20060501
  Serious: Yes (Other)
  Sender: FDA-Public Use
  Company Number: THQ2005A01016

PATIENT
  Age: 69 Year
  Sex: Female

DRUGS (1)
  1. ACTOS [Suspect]
     Dates: start: 20040101

REACTIONS (1)
  - TRIPLE VESSEL BYPASS GRAFT [None]
